FAERS Safety Report 19093868 (Version 1)
Quarter: 2021Q2

REPORT INFORMATION
  Report Type: Spontaneous
  Country: CA (occurrence: CA)
  Receive Date: 20210405
  Receipt Date: 20210405
  Transmission Date: 20210717
  Serious: Yes (Life-Threatening, Other)
  Sender: FDA-Public Use
  Company Number: CA-TEVA-2021-CA-1897223

PATIENT
  Age: 57 Year
  Sex: Female
  Weight: 36 kg

DRUGS (5)
  1. GRANISETRON [Concomitant]
     Active Substance: GRANISETRON
  2. OXALIPLATIN INJECTION SINGLE USE VIALS [Suspect]
     Active Substance: OXALIPLATIN
     Indication: COLON CANCER
     Route: 041
  3. ZOPICLONE [Concomitant]
     Active Substance: ZOPICLONE
  4. LEUCOVORIN. [Concomitant]
     Active Substance: LEUCOVORIN
  5. DEXAMETHASONE. [Concomitant]
     Active Substance: DEXAMETHASONE
     Route: 065

REACTIONS (4)
  - Swollen tongue [Recovered/Resolved]
  - Nausea [Recovered/Resolved]
  - Pruritus [Recovered/Resolved]
  - Burning sensation [Recovered/Resolved]
